FAERS Safety Report 10572157 (Version 2)
Quarter: 2015Q1

REPORT INFORMATION
  Report Type: Spontaneous
  Country: JP (occurrence: JP)
  Receive Date: 20141108
  Receipt Date: 20150126
  Transmission Date: 20150720
  Serious: Yes (Other)
  Sender: FDA-Public Use
  Company Number: JP-009507513-1411JPN000146

PATIENT
  Age: 17 Year
  Sex: Male

DRUGS (4)
  1. SEVOFLURANE. [Suspect]
     Active Substance: SEVOFLURANE
     Indication: MAINTENANCE OF ANAESTHESIA
     Dosage: FORMULATION: INHALATION, DAILY DOSE UNKNOWN
     Route: 055
  2. ESLAX INTRAVENOUS 25MG/2.5ML [Suspect]
     Active Substance: ROCURONIUM BROMIDE
     Indication: NEUROMUSCULAR BLOCKING THERAPY
     Dosage: DAILY DOSE UNKNOWN
     Route: 041
  3. PENTAZOCINE [Suspect]
     Active Substance: PENTAZOCINE
     Indication: MAINTENANCE OF ANAESTHESIA
     Dosage: DAILY DOSE UNKNOWN
     Route: 051
  4. PROPOFOL. [Suspect]
     Active Substance: PROPOFOL
     Indication: INDUCTION OF ANAESTHESIA
     Dosage: FORMULATION: INJECTION, DAILY DOSE UNKNOWN, IV UNSPECIFIED
     Route: 042

REACTIONS (2)
  - Bradyarrhythmia [Recovered/Resolved]
  - Cardiac arrest [Recovered/Resolved]
